FAERS Safety Report 4661286-1 (Version None)
Quarter: 2005Q2

REPORT INFORMATION
  Report Type: 
  Country: None (occurrence: None)
  Receive Date: 20050513
  Receipt Date: 20050502
  Transmission Date: 20051028
  Serious: Yes (Hospitalization)
  Sender: FDA-Public Use
  Company Number: FR-BRISTOL-MYERS SQUIBB COMPANY-12953253

PATIENT
  Age: 74 Year
  Sex: Male

DRUGS (1)
  1. KENACORT [Suspect]
     Indication: RETINAL VEIN THROMBOSIS
     Route: 030
     Dates: end: 20050215

REACTIONS (1)
  - UVEITIS [None]
